FAERS Safety Report 4463537-5 (Version None)
Quarter: 2004Q3

REPORT INFORMATION
  Report Type: 
  Country: None (occurrence: None)
  Receive Date: 20040928
  Receipt Date: 20040916
  Transmission Date: 20050211
  Serious: Yes (Life-Threatening, Disabling)
  Sender: FDA-Public Use
  Company Number: 04H-087-0273805-00

PATIENT
  Age: 60 Year
  Sex: Male

DRUGS (1)
  1. PRECEDEX INJECTION (DEXMEDETOMIDINE HYDROCHLORIDE INJECTION) (DEXMEDET [Suspect]
     Indication: SEDATIVE THERAPY

REACTIONS (2)
  - CEREBRAL INFARCTION [None]
  - POST PROCEDURAL COMPLICATION [None]
